FAERS Safety Report 6166696-1 (Version None)
Quarter: 2009Q2

REPORT INFORMATION
  Report Type: 
  Country: None (occurrence: None)
  Receive Date: 20090424
  Receipt Date: 20090413
  Transmission Date: 20091009
  Serious: Yes (Death, Hospitalization)
  Sender: FDA-Public Use
  Company Number: US-PFIZER INC-2009186007

PATIENT
  Sex: Male
  Weight: 95 kg

DRUGS (7)
  1. DILANTIN [Suspect]
     Indication: CONVULSION
     Dosage: 100 MG, UNK
     Route: 048
     Dates: start: 20070501
  2. TOPROL-XL [Concomitant]
     Dosage: 50 MG, UNK
  3. ADVAIR HFA [Concomitant]
  4. COMBIVENT [Concomitant]
  5. SIMVASTATIN [Concomitant]
     Dosage: 40 MG, UNK
  6. ACETYLSALICYLIC ACID [Concomitant]
     Dosage: 81 MG, UNK
  7. DECADRON [Concomitant]

REACTIONS (2)
  - STEVENS-JOHNSON SYNDROME [None]
  - TOXIC EPIDERMAL NECROLYSIS [None]
